FAERS Safety Report 8508769-1 (Version None)
Quarter: 2012Q3

REPORT INFORMATION
  Report Type: 
  Country: None (occurrence: None)
  Receive Date: 20120703
  Receipt Date: 20120626
  Transmission Date: 20120928
  Serious: Yes (Hospitalization)
  Sender: FDA-Public Use
  Company Number: PIR#400144488

PATIENT
  Age: 26 Year
  Sex: Male

DRUGS (6)
  1. INSULIN [Concomitant]
  2. IMIPENEM [Concomitant]
  3. CEFOXITIN SODIUM [Suspect]
  4. DIPHENHYDRAMINE HCL [Concomitant]
  5. PROMETHAZINE [Concomitant]
  6. CILASTATIN [Concomitant]

REACTIONS (3)
  - RECTAL HAEMORRHAGE [None]
  - DEHYDRATION [None]
  - RENAL FAILURE [None]
